FAERS Safety Report 20134005 (Version 4)
Quarter: 2022Q2

REPORT INFORMATION
  Report Type: Report from Study
  Country: DE (occurrence: DE)
  Receive Date: 20211201
  Receipt Date: 20220527
  Transmission Date: 20220720
  Serious: Yes (Hospitalization, Other)
  Sender: FDA-Public Use
  Company Number: DE-BRISTOL-MYERS SQUIBB COMPANY-BMS-2021-096784

PATIENT
  Age: 59 Year
  Sex: Male
  Weight: 82 kg

DRUGS (5)
  1. NIVOLUMAB [Suspect]
     Active Substance: NIVOLUMAB
     Indication: Malignant melanoma
     Dosage: 82 MILLIGRAM, APPLICATION IS INFUSION
     Route: 065
     Dates: start: 20210811, end: 20211013
  2. IPILIMUMAB [Suspect]
     Active Substance: IPILIMUMAB
     Indication: Malignant melanoma
     Dosage: 250 MILLIGRAM
     Route: 065
     Dates: start: 20210811, end: 20210901
  3. AMLODIPINE [Concomitant]
     Active Substance: AMLODIPINE BESYLATE
     Indication: Product used for unknown indication
     Dosage: 5 MILLIGRAM
     Route: 048
  4. ALBUTEROL [Concomitant]
     Active Substance: ALBUTEROL
     Indication: Product used for unknown indication
     Dosage: APPLICATION INHALATIVE (P.I.=PER INHALATION)
     Route: 055
  5. URSODIOL [Concomitant]
     Active Substance: URSODIOL
     Indication: Product used for unknown indication
     Route: 048
     Dates: start: 20210812

REACTIONS (3)
  - Immune-mediated enterocolitis [Unknown]
  - Helicobacter gastritis [Not Recovered/Not Resolved]
  - Off label use [Unknown]

NARRATIVE: CASE EVENT DATE: 20210914
